FAERS Safety Report 22630143 (Version 1)
Quarter: 2023Q2

REPORT INFORMATION
  Report Type: Spontaneous
  Country: US (occurrence: US)
  Receive Date: 20230622
  Receipt Date: 20230622
  Transmission Date: 20230722
  Serious: No
  Sender: FDA-Public Use
  Company Number: US-MYLANLABS-2023M1051577

PATIENT
  Sex: Female

DRUGS (1)
  1. ESTRADIOL TRANSDERMAL SYSTEM [Suspect]
     Active Substance: ESTRADIOL
     Indication: Hormone replacement therapy
     Dosage: 0.06 MILLIGRAM, QD (ONCE WEEKLY)
     Route: 062

REACTIONS (4)
  - Application site irritation [Unknown]
  - Application site vesicles [Unknown]
  - Wrong technique in product usage process [Unknown]
  - Product adhesion issue [Unknown]
